FAERS Safety Report 21058543 (Version 1)
Quarter: 2022Q3

REPORT INFORMATION
  Report Type: Report from Study
  Country: BR (occurrence: BR)
  Receive Date: 20220708
  Receipt Date: 20220708
  Transmission Date: 20221027
  Serious: Yes (Other)
  Sender: FDA-Public Use
  Company Number: BR-GLAXOSMITHKLINE-BR2022GSK101980

PATIENT

DRUGS (4)
  1. DOSTARLIMAB [Suspect]
     Active Substance: DOSTARLIMAB
     Indication: Endometrial cancer
     Dosage: UNK
     Route: 042
  2. XARELTO [Concomitant]
     Active Substance: RIVAROXABAN
     Indication: Thrombosis
     Dosage: 20 MG, BID
     Route: 048
     Dates: start: 202107
  3. LEVOTHYROXINE SODIUM [Concomitant]
     Active Substance: LEVOTHYROXINE SODIUM
     Indication: Blood thyroid stimulating hormone increased
     Dosage: 75 MG, BID
     Route: 048
     Dates: start: 202202
  4. SIMVASTATIN [Concomitant]
     Active Substance: SIMVASTATIN
     Indication: Hypercholesterolaemia
     Dosage: 20 MG, BID
     Route: 048
     Dates: start: 202203

REACTIONS (2)
  - Diabetes mellitus [Recovered/Resolved]
  - Eye haemorrhage [Recovered/Resolved]

NARRATIVE: CASE EVENT DATE: 20220626
